FAERS Safety Report 7545061-6 (Version None)
Quarter: 2011Q2

REPORT INFORMATION
  Report Type: 
  Country: None (occurrence: None)
  Receive Date: 20110614
  Receipt Date: 20110531
  Transmission Date: 20111010
  Serious: Yes (Other)
  Sender: FDA-Public Use
  Company Number: US-BAYER-201028643NA

PATIENT
  Age: 38 Year
  Sex: Female
  Weight: 78.005 kg

DRUGS (25)
  1. WELLBUTRIN [Concomitant]
     Indication: DEPRESSION
     Dosage: 150 MG, UNK
     Route: 048
     Dates: start: 20050101
  2. GLUMETZA [Concomitant]
     Indication: DIABETES MELLITUS
  3. PROMETHAZINE [Concomitant]
     Route: 048
  4. YASMIN [Suspect]
     Indication: PREMENSTRUAL SYNDROME
  5. PROAIR HFA [Concomitant]
     Indication: ASTHMA
     Dosage: UNK
     Dates: start: 20050101
  6. CHOLESTYRAMINE [Concomitant]
     Dosage: UNK
     Dates: start: 20100511
  7. YAZ [Suspect]
     Indication: PREMENSTRUAL SYNDROME
  8. PRU [Concomitant]
     Dosage: 50 MG, UNK
     Dates: start: 20040101
  9. SOMA [Concomitant]
     Indication: MUSCLE SPASMS
     Dosage: 350 MG, UNK
     Dates: start: 20040101
  10. METAFORMAN [Concomitant]
     Dosage: 750 MG, UNK
     Dates: start: 20050101
  11. XANAX [Concomitant]
     Dosage: 25 MG, UNK
     Route: 048
     Dates: start: 20050101
  12. WELCO [Concomitant]
     Dosage: 600 MG, UNK
     Dates: start: 20100101
  13. NEXIUM [Concomitant]
     Indication: ABDOMINAL PAIN UPPER
     Dosage: 40 MG, PRN
  14. SPIRONOLACTONE [Concomitant]
     Dosage: 100 MG, UNK
  15. YAZ [Suspect]
     Indication: ACNE
  16. PEPCID [Concomitant]
     Indication: ABDOMINAL PAIN UPPER
  17. PROPYLTHIOURACIL [Concomitant]
     Indication: BASEDOW'S DISEASE
     Dosage: 50 MG, UNK
     Route: 048
  18. METFORMIN HCL [Concomitant]
     Indication: DIABETES MELLITUS
     Dosage: 750 MG, UNK
     Route: 048
  19. YASMIN [Suspect]
     Indication: CONTRACEPTION
     Dosage: UNK
     Route: 048
     Dates: start: 20040501, end: 20060501
  20. YASMIN [Suspect]
     Indication: ACNE
  21. CYMBALTA [Concomitant]
     Dosage: 60 MG, UNK
     Dates: start: 20050101
  22. PEPCID [Concomitant]
     Indication: DYSPEPSIA
  23. NEXIUM [Concomitant]
     Indication: DYSPEPSIA
  24. SOMA [Concomitant]
     Indication: BACK PAIN
  25. YAZ [Suspect]
     Indication: CONTRACEPTION
     Dosage: UNK
     Route: 048
     Dates: start: 20060501, end: 20101121

REACTIONS (6)
  - ABDOMINAL PAIN UPPER [None]
  - CHOLECYSTITIS [None]
  - CHOLECYSTITIS CHRONIC [None]
  - VOMITING [None]
  - CHOLELITHIASIS [None]
  - NAUSEA [None]
